FAERS Safety Report 8262873 (Version 2)
Quarter: 2012Q4

REPORT INFORMATION
  Report Type: 
  Country: TW (occurrence: TW)
  Receive Date: 20111125
  Receipt Date: 20121207
  Transmission Date: 20130627
  Serious: Yes (Death, Other)
  Sender: FDA-Public Use
  Company Number: TW-RANBAXY-2011RR-50482

PATIENT
  Age: 49 Year
  Sex: Female

DRUGS (8)
  1. LAMIVUDINE [Suspect]
     Indication: HIV INFECTION
     Dosage: 150 mg, bid
     Route: 065
     Dates: start: 200902
  2. ATAZANAVIR [Suspect]
     Indication: HIV INFECTION
     Dosage: 400 mg/day
     Route: 065
     Dates: start: 200902
  3. ZIDOVUDINE [Suspect]
     Indication: HIV INFECTION
     Dosage: 300 mg, bid
     Route: 065
     Dates: start: 200902
  4. STAVUDINE [Suspect]
     Indication: HIV INFECTION
     Dosage: 30 mg, bid
     Route: 065
  5. EFAVIRENZ [Suspect]
     Indication: HIV INFECTION
     Dosage: 600 mg, qd (per night)
     Route: 065
  6. PYRIDOSTIGMINE [Concomitant]
     Indication: MYASTHENIA GRAVIS
     Dosage: 120-180 mg, daily
     Route: 048
  7. PYRIDOSTIGMINE [Concomitant]
     Dosage: 180-240 mg, daily
     Route: 048
  8. PYRIDOSTIGMINE [Concomitant]
     Dosage: 60-120 mg, daily
     Route: 048
     Dates: start: 200906

REACTIONS (2)
  - Immune reconstitution inflammatory syndrome [Recovering/Resolving]
  - Myasthenia gravis [Recovering/Resolving]
